FAERS Safety Report 5608803-2 (Version None)
Quarter: 2008Q1

REPORT INFORMATION
  Report Type: 
  Country: None (occurrence: None)
  Receive Date: 20080131
  Receipt Date: 20080125
  Transmission Date: 20080703
  Serious: Yes (Death, Life-Threatening, Hospitalization)
  Sender: FDA-Public Use
  Company Number: JP-BRISTOL-MYERS SQUIBB COMPANY-13868583

PATIENT
  Age: 72 Year
  Sex: Male
  Weight: 57 kg

DRUGS (16)
  1. CISPLATIN [Suspect]
     Indication: PLEURAL MESOTHELIOMA MALIGNANT
     Dosage: 60MG ON 25-MAY-2006,75MG ON 04-APR-2007, 3COURSES WITH GEMCITABINE FROM 11-SEP-2006 TO 07-DEC-2006.
     Route: 041
     Dates: start: 20070205, end: 20070411
  2. PEMETREXED DISODIUM [Suspect]
     Indication: PLEURAL MESOTHELIOMA MALIGNANT
     Dosage: TAKEN AT REDUCED DOSE OF 75MG ON 04APR07 AND ON 11APR07
     Route: 042
     Dates: start: 20070205, end: 20070411
  3. PANVITAN [Concomitant]
     Route: 048
     Dates: start: 20070126, end: 20070419
  4. CYANOCOBALAMIN [Concomitant]
     Dosage: ALSO TAKEN ON 30-MAR-2007, INTRAMUSCULAR.
     Route: 030
     Dates: start: 20070126, end: 20070310
  5. MYSLEE [Concomitant]
     Route: 048
     Dates: end: 20070308
  6. LOXONIN [Concomitant]
     Route: 048
     Dates: end: 20070215
  7. MEDICON [Concomitant]
     Route: 048
     Dates: end: 20070315
  8. CYTOTEC [Concomitant]
     Route: 048
     Dates: end: 20070419
  9. URSO 250 [Concomitant]
     Route: 048
     Dates: end: 20070301
  10. CALONAL [Concomitant]
     Route: 048
     Dates: end: 20070420
  11. NAPROXEN [Concomitant]
     Route: 048
     Dates: start: 20070319, end: 20070419
  12. OXYCONTIN [Concomitant]
     Route: 048
     Dates: start: 20070329, end: 20070418
  13. DAI-KENCHU-TO [Concomitant]
     Route: 048
     Dates: start: 20070331, end: 20070401
  14. DECADRON [Concomitant]
     Route: 041
     Dates: start: 20070204, end: 20070406
  15. NASEA [Concomitant]
     Route: 041
     Dates: start: 20070205, end: 20070407
  16. SERENACE [Concomitant]
     Route: 048
     Dates: start: 20070329, end: 20070416

REACTIONS (10)
  - ANAEMIA [None]
  - C-REACTIVE PROTEIN INCREASED [None]
  - HEADACHE [None]
  - HEPATIC FUNCTION ABNORMAL [None]
  - HYPOALBUMINAEMIA [None]
  - LYMPHOCYTE COUNT DECREASED [None]
  - MALIGNANT NEOPLASM PROGRESSION [None]
  - NAUSEA [None]
  - PLATELET COUNT DECREASED [None]
  - RENAL IMPAIRMENT [None]
